FAERS Safety Report 6853548-4 (Version None)
Quarter: 2010Q3

REPORT INFORMATION
  Report Type: 
  Country: None (occurrence: None)
  Receive Date: 20100717
  Receipt Date: 20071210
  Transmission Date: 20110219
  Serious: No
  Sender: FDA-Public Use
  Company Number: US-PFIZER INC-2007105414

PATIENT
  Sex: Female
  Weight: 52.6 kg

DRUGS (3)
  1. CHANTIX [Suspect]
     Indication: SMOKING CESSATION THERAPY
     Dates: start: 20070801, end: 20070901
  2. ATENOLOL [Concomitant]
     Dates: start: 19890101
  3. PREMARIN [Concomitant]
     Dates: start: 19890101

REACTIONS (3)
  - DRUG INTOLERANCE [None]
  - DYSPEPSIA [None]
  - NAUSEA [None]
